FAERS Safety Report 18193279 (Version 2)
Quarter: 2020Q3

REPORT INFORMATION
  Report Type: Spontaneous
  Country: JP (occurrence: JP)
  Receive Date: 20200825
  Receipt Date: 20200928
  Transmission Date: 20201103
  Serious: Yes (Other)
  Sender: FDA-Public Use
  Company Number: JP-ELI_LILLY_AND_COMPANY-JP202008007682

PATIENT
  Age: 5 Year
  Sex: Male
  Weight: 10.2 kg

DRUGS (18)
  1. UPTRAVI [Suspect]
     Active Substance: SELEXIPAG
     Indication: PULMONARY ARTERIAL HYPERTENSION
     Dosage: 0.04 MG, BID
     Route: 048
     Dates: start: 20170622, end: 20170628
  2. UPTRAVI [Suspect]
     Active Substance: SELEXIPAG
     Dosage: 0.16 MG, BID
     Route: 048
     Dates: start: 20170721, end: 20170803
  3. OPSUMIT [Concomitant]
     Active Substance: MACITENTAN
     Dosage: 2.4 MG, DAILY
     Dates: start: 20181022
  4. LASIX [Concomitant]
     Active Substance: FUROSEMIDE
     Indication: RIGHT VENTRICULAR FAILURE
     Dosage: 9 MG, DAILY
     Dates: start: 20150907
  5. UPTRAVI [Suspect]
     Active Substance: SELEXIPAG
     Dosage: 0.2 MG, BID
     Route: 048
     Dates: start: 20170804, end: 20170817
  6. UPTRAVI [Suspect]
     Active Substance: SELEXIPAG
     Dosage: 0.24 MG, BID
     Route: 048
     Dates: start: 20170818, end: 20170829
  7. UPTRAVI [Suspect]
     Active Substance: SELEXIPAG
     Dosage: 0.08 MG, BID
     Route: 048
     Dates: start: 20170629, end: 20170704
  8. UPTRAVI [Suspect]
     Active Substance: SELEXIPAG
     Dosage: 0.28 MG, BID
     Route: 048
     Dates: start: 20170830, end: 20170911
  9. UPTRAVI [Suspect]
     Active Substance: SELEXIPAG
     Dosage: 0.35 MG, BID
     Route: 048
     Dates: start: 20180313, end: 20190526
  10. OPSUMIT [Concomitant]
     Active Substance: MACITENTAN
     Indication: PULMONARY ARTERIAL HYPERTENSION
     Dosage: 3 MG, DAILY
     Dates: start: 20151224
  11. OPSUMIT [Concomitant]
     Active Substance: MACITENTAN
     Dosage: 2.5 MG, DAILY
     Dates: start: 20190121
  12. UPTRAVI [Suspect]
     Active Substance: SELEXIPAG
     Dosage: 0.12 MG, BID
     Route: 048
     Dates: start: 20170705, end: 20170720
  13. ADCIRCA [Suspect]
     Active Substance: TADALAFIL
     Indication: PULMONARY ARTERIAL HYPERTENSION
     Dosage: 3?16 MG, DAILY
     Route: 065
     Dates: start: 20160229
  14. ADCIRCA [Suspect]
     Active Substance: TADALAFIL
     Dosage: 18 MG, DAILY
     Route: 065
     Dates: start: 20181119
  15. UPTRAVI [Suspect]
     Active Substance: SELEXIPAG
     Dosage: 0.32 MG, BID
     Route: 048
     Dates: start: 20170912, end: 20180312
  16. UPTRAVI [Suspect]
     Active Substance: SELEXIPAG
     Dosage: 0.38 MG, BID
     Route: 048
     Dates: start: 20190527
  17. EPOPROSTENOL [EPOPROSTENOL SODIUM] [Concomitant]
     Active Substance: EPOPROSTENOL SODIUM
     Indication: PULMONARY ARTERIAL HYPERTENSION
     Dosage: 10 UG, DAILY
     Dates: start: 20200616
  18. DORNER [Concomitant]
     Active Substance: BERAPROST SODIUM
     Indication: PULMONARY ARTERIAL HYPERTENSION
     Dosage: UNK
     Dates: start: 20160929, end: 20170924

REACTIONS (2)
  - Catheter site infection [Recovering/Resolving]
  - Off label use [Not Recovered/Not Resolved]

NARRATIVE: CASE EVENT DATE: 20200802
